FAERS Safety Report 21353607 (Version 1)
Quarter: 2022Q3

REPORT INFORMATION
  Report Type: Spontaneous
  Country: US (occurrence: US)
  Receive Date: 20220920
  Receipt Date: 20220920
  Transmission Date: 20221027
  Serious: No
  Sender: FDA-Public Use
  Company Number: US-BRISTOL-MYERS SQUIBB COMPANY-2022-108638

PATIENT
  Age: 69 Year
  Sex: Female
  Weight: 89.81 kg

DRUGS (1)
  1. REVLIMID [Suspect]
     Active Substance: LENALIDOMIDE
     Indication: Plasma cell myeloma
     Dosage: QD 14 ON, 14 OFF
     Route: 048
     Dates: start: 20210701, end: 20220830

REACTIONS (2)
  - Laboratory test abnormal [Unknown]
  - Off label use [Unknown]
